FAERS Safety Report 15677078 (Version 7)
Quarter: 2020Q4

REPORT INFORMATION
  Report Type: Spontaneous
  Country: US (occurrence: US)
  Receive Date: 20181130
  Receipt Date: 20201002
  Transmission Date: 20210113
  Serious: Yes (Death)
  Sender: FDA-Public Use
  Company Number: US-PFIZER INC-2018491027

PATIENT
  Age: 38 Year
  Sex: Male
  Weight: 156.01 kg

DRUGS (2)
  1. SOMAVERT [Suspect]
     Active Substance: PEGVISOMANT
     Indication: ACROMEGALY
     Dosage: 10 MG, DAILY (SDV INJ KIT W/ PFS DILUENT)
     Route: 058
  2. SOMAVERT [Suspect]
     Active Substance: PEGVISOMANT
     Indication: GIGANTISM

REACTIONS (8)
  - Death [Fatal]
  - Vision blurred [Unknown]
  - Arthralgia [Unknown]
  - Fatigue [Unknown]
  - Abdominal pain upper [Unknown]
  - Lethargy [Unknown]
  - Libido decreased [Unknown]
  - Pain in extremity [Unknown]
